FAERS Safety Report 6912618-2 (Version None)
Quarter: 2010Q3

REPORT INFORMATION
  Report Type: 
  Country: None (occurrence: None)
  Receive Date: 20100806
  Receipt Date: 20080813
  Transmission Date: 20110219
  Serious: Yes (Other)
  Sender: FDA-Public Use
  Company Number: US-PFIZER INC-2008068099

PATIENT
  Sex: Male
  Weight: 100 kg

DRUGS (3)
  1. VFEND [Suspect]
     Indication: FUNGAL INFECTION
     Route: 042
     Dates: start: 20080701, end: 20080701
  2. VFEND [Suspect]
     Indication: FUNGAL INFECTION
     Route: 048
     Dates: start: 20080701, end: 20080801
  3. TOPROL-XL [Concomitant]
     Indication: CARDIAC DISORDER

REACTIONS (1)
  - RASH GENERALISED [None]
